FAERS Safety Report 22721438 (Version 2)
Quarter: 2024Q3

REPORT INFORMATION
  Report Type: Spontaneous
  Country: US (occurrence: US)
  Receive Date: 20230719
  Receipt Date: 20240723
  Transmission Date: 20241017
  Serious: Yes (Hospitalization, Other)
  Sender: OTSUKA
  Company Number: US-OTSUKA-2023_010470

PATIENT
  Age: 64 Year
  Sex: Male

DRUGS (3)
  1. REXULTI [Suspect]
     Active Substance: BREXPIPRAZOLE
     Indication: Depression
     Dosage: 0.5 MG FOR A WEEK
     Route: 065
     Dates: start: 2023, end: 2023
  2. REXULTI [Suspect]
     Active Substance: BREXPIPRAZOLE
     Indication: Adjuvant therapy
     Dosage: 1 MG FOR 3 WEEKS
     Route: 065
     Dates: start: 2023, end: 2023
  3. REXULTI [Suspect]
     Active Substance: BREXPIPRAZOLE
     Dosage: 2 MG, QD
     Route: 065
     Dates: start: 2023, end: 2023

REACTIONS (1)
  - Suicidal ideation [Unknown]
